FAERS Safety Report 8342875 (Version 2)
Quarter: 2013Q2

REPORT INFORMATION
  Report Type: Spontaneous
  Country: US (occurrence: US)
  Receive Date: 20120119
  Receipt Date: 20130503
  Transmission Date: 20140414
  Serious: Yes (Other)
  Sender: FDA-Public Use
  Company Number: US-PFIZER INC-2012013142

PATIENT
  Sex: Female

DRUGS (1)
  1. NARDIL [Suspect]
     Dosage: UNK

REACTIONS (4)
  - Glaucoma [Unknown]
  - Thrombosis [Unknown]
  - Drug hypersensitivity [Not Recovered/Not Resolved]
  - Dyskinesia [Not Recovered/Not Resolved]
